FAERS Safety Report 25829537 (Version 1)
Quarter: 2025Q3

REPORT INFORMATION
  Report Type: Spontaneous
  Country: CN (occurrence: CN)
  Receive Date: 20250922
  Receipt Date: 20250922
  Transmission Date: 20251021
  Serious: Yes (Life-Threatening, Hospitalization, Other)
  Sender: ROCHE
  Company Number: CN-ROCHE-10000392615

PATIENT
  Age: 76 Year
  Sex: Female

DRUGS (1)
  1. HERCEPTIN [Suspect]
     Active Substance: TRASTUZUMAB
     Indication: HER2 positive breast cancer
     Route: 042
     Dates: start: 20250913, end: 20250913

REACTIONS (22)
  - Dyspnoea [Not Recovered/Not Resolved]
  - Tachypnoea [Not Recovered/Not Resolved]
  - Drooling [Not Recovered/Not Resolved]
  - Blood pressure increased [Not Recovered/Not Resolved]
  - Oxygen saturation decreased [Not Recovered/Not Resolved]
  - Asthma [Unknown]
  - Respiratory failure [Not Recovered/Not Resolved]
  - Respiratory acidosis [Unknown]
  - Metabolic alkalosis [Unknown]
  - Arrhythmia [Unknown]
  - Ventricular extrasystoles [Unknown]
  - Cardiac failure [Unknown]
  - Electrolyte imbalance [Unknown]
  - Confusional state [Unknown]
  - Heart rate increased [Unknown]
  - Pain [Unknown]
  - Breath sounds abnormal [Recovering/Resolving]
  - Rales [Recovering/Resolving]
  - Chest pain [Unknown]
  - Back pain [Unknown]
  - Palpitations [Unknown]
  - Chest discomfort [Unknown]

NARRATIVE: CASE EVENT DATE: 20250913
